FAERS Safety Report 6961398-3 (Version None)
Quarter: 2010Q3

REPORT INFORMATION
  Report Type: 
  Country: None (occurrence: None)
  Receive Date: 20100901
  Receipt Date: 20100819
  Transmission Date: 20110219
  Serious: Yes (Hospitalization, Other)
  Sender: FDA-Public Use
  Company Number: PHHY2010DE43846

PATIENT
  Sex: Female
  Weight: 65 kg

DRUGS (4)
  1. MYCOPHENOLIC ACID [Suspect]
     Indication: RENAL TRANSPLANT
     Dosage: 360 MG/DAY
     Route: 048
     Dates: start: 20100504
  2. SANDIMMUNE [Suspect]
     Indication: RENAL TRANSPLANT
     Dosage: 130 MG AND 150 MG
     Route: 048
     Dates: start: 20100625
  3. SANDIMMUNE [Suspect]
     Dosage: 90 MG IN AM, 60 MG IN PM
     Route: 048
  4. SANDIMMUNE [Suspect]
     Dosage: 60 MG
     Route: 048

REACTIONS (6)
  - AMYLOIDOSIS [None]
  - ESCHERICHIA INFECTION [None]
  - PLEURAL EFFUSION [None]
  - RENAL FAILURE ACUTE [None]
  - URINARY TRACT INFECTION [None]
  - UROSEPSIS [None]
